FAERS Safety Report 6761351-9 (Version None)
Quarter: 2010Q2

REPORT INFORMATION
  Report Type: 
  Country: None (occurrence: None)
  Receive Date: 20100607
  Receipt Date: 20100526
  Transmission Date: 20101027
  Serious: Yes (Other)
  Sender: FDA-Public Use
  Company Number: 2010AL003180

PATIENT
  Age: 67 Year
  Sex: Male

DRUGS (9)
  1. METOCLOPRAMIDE [Suspect]
     Indication: NAUSEA
     Dosage: 10 MG; TID; PO
     Route: 048
     Dates: start: 20100504, end: 20100511
  2. OMEPRAZOLE [Concomitant]
  3. PROPRANOLOL [Concomitant]
  4. RAMIPRIL [Concomitant]
  5. ACETYLSALICYLIC ACID [Concomitant]
  6. ENOXAPARIN SODIUM [Concomitant]
  7. PARACETAMOL [Concomitant]
  8. TRAMADOL HCL [Concomitant]
  9. IBUPROFEN [Concomitant]

REACTIONS (5)
  - AGITATION [None]
  - CONFUSIONAL STATE [None]
  - HALLUCINATION, VISUAL [None]
  - HEAD INJURY [None]
  - INTENTIONAL SELF-INJURY [None]
